FAERS Safety Report 9271762 (Version 1)
Quarter: 2013Q2

REPORT INFORMATION
  Report Type: Spontaneous
  Country: ES (occurrence: ES)
  Receive Date: 20130506
  Receipt Date: 20130506
  Transmission Date: 20140414
  Serious: Yes (Other)
  Sender: FDA-Public Use
  Company Number: ES-009507513-1304ESP016408

PATIENT
  Age: 17 Year
  Sex: Female

DRUGS (1)
  1. RIZATRIPTAN 10 MG MSD [Suspect]
     Indication: MIGRAINE
     Dosage: 10 MG, 2 TABLETS
     Route: 048

REACTIONS (3)
  - Hepatitis toxic [Recovering/Resolving]
  - Hepatocellular injury [None]
  - Cholestasis [None]
